FAERS Safety Report 24918012 (Version 1)
Quarter: 2025Q1

REPORT INFORMATION
  Report Type: Spontaneous
  Country: CA (occurrence: CA)
  Receive Date: 20250203
  Receipt Date: 20250203
  Transmission Date: 20250409
  Serious: Yes (Other)
  Sender: SANDOZ
  Company Number: CA-SANDOZ-SDZ2025CA006348

PATIENT
  Sex: Female

DRUGS (1)
  1. LEVETIRACETAM [Suspect]
     Active Substance: LEVETIRACETAM
     Indication: Product used for unknown indication
     Route: 048

REACTIONS (4)
  - Drug intolerance [Recovered/Resolved]
  - Hypersensitivity [Recovered/Resolved]
  - Seizure [Recovered/Resolved]
  - Therapeutic product ineffective [Recovered/Resolved]
